FAERS Safety Report 14601762 (Version 1)
Quarter: 2018Q1

REPORT INFORMATION
  Report Type: Spontaneous
  Country: US (occurrence: US)
  Receive Date: 20180306
  Receipt Date: 20180306
  Transmission Date: 20180509
  Serious: No
  Sender: FDA-Public Use
  Company Number: PHEH2018US008792

PATIENT
  Sex: Male

DRUGS (1)
  1. AFINITOR [Suspect]
     Active Substance: EVEROLIMUS
     Indication: PRODUCT USED FOR UNKNOWN INDICATION
     Route: 065

REACTIONS (7)
  - Hypotension [Unknown]
  - Aphonia [Unknown]
  - Influenza like illness [Recovered/Resolved]
  - Mouth haemorrhage [Unknown]
  - Dysphonia [Unknown]
  - Epistaxis [Unknown]
  - Fatigue [Unknown]
